FAERS Safety Report 9781884 (Version 1)
Quarter: 2013Q4

REPORT INFORMATION
  Report Type: Spontaneous
  Country: US (occurrence: US)
  Receive Date: 20131225
  Receipt Date: 20131225
  Transmission Date: 20140711
  Serious: No
  Sender: FDA-Public Use
  Company Number: US-009507513-1312USA009928

PATIENT
  Age: 72 Year
  Sex: Female

DRUGS (5)
  1. DULERA [Suspect]
     Indication: ASTHMA
     Dosage: 2 PUFFS BID, ORAL INHALATION
     Route: 055
     Dates: start: 20120606
  2. DULERA [Suspect]
     Indication: CHRONIC OBSTRUCTIVE PULMONARY DISEASE
     Dosage: 2 PUFFS BID, ORAL INHALATION
     Route: 055
     Dates: start: 201309, end: 2013
  3. DULERA [Suspect]
     Dosage: 2 PUFFS BID, ORAL INHALATION
     Route: 055
     Dates: start: 20131219, end: 201312
  4. DULERA [Suspect]
     Dosage: 2 PUFFS BID, ORAL INHALATION
     Route: 055
     Dates: start: 2013
  5. SPIRIVA [Concomitant]

REACTIONS (3)
  - Product quality issue [Unknown]
  - Drug dose omission [Unknown]
  - Dyspnoea [Unknown]
